FAERS Safety Report 7465205-4 (Version None)
Quarter: 2011Q2

REPORT INFORMATION
  Report Type: 
  Country: None (occurrence: None)
  Receive Date: 20110509
  Receipt Date: 20110427
  Transmission Date: 20111010
  Serious: Yes (Other)
  Sender: FDA-Public Use
  Company Number: PHHY2011BE36890

PATIENT
  Age: 52 Year
  Sex: Female

DRUGS (6)
  1. LEVOTHYROXINE SODIUM [Concomitant]
  2. LORAZEPAM [Concomitant]
  3. ATENOLOL [Concomitant]
  4. AREDIA [Suspect]
     Indication: CHEST PAIN
  5. ALPRAZOLAM [Concomitant]
  6. AREDIA [Suspect]
     Indication: OSTEOMALACIA
     Dosage: 45 MG, UNK

REACTIONS (8)
  - INGROWING NAIL [None]
  - NAIL BED BLEEDING [None]
  - OEDEMA PERIPHERAL [None]
  - GINGIVAL RECESSION [None]
  - PAIN IN EXTREMITY [None]
  - ONYCHOLYSIS [None]
  - NAIL BED TENDERNESS [None]
  - ERYTHEMA [None]
